FAERS Safety Report 9238450 (Version 1)
Quarter: 2013Q2

REPORT INFORMATION
  Report Type: Spontaneous
  Country: US (occurrence: None)
  Receive Date: 20130416
  Receipt Date: 20130416
  Transmission Date: 20140414
  Serious: Yes (Hospitalization)
  Sender: FDA-Public Use
  Company Number: ACO_35436_2013

PATIENT
  Age: 57 Year
  Sex: Female

DRUGS (4)
  1. AMPYRA (DALFAMPRIDINE) TABLET, 10MG [Suspect]
     Indication: PRODUCT USED FOR UNKNOWN INDICATION
     Route: 048
     Dates: start: 201302
  2. ALBUTEROL (SALBUTAMOL SULFATE) AEROSOL (SPRY AND INHALATION) [Concomitant]
  3. METOPROLOL (METOPROLOL TARTRATE) TABLET [Concomitant]
  4. BETASERON (INTERFERON-BETA-1B) [Concomitant]

REACTIONS (6)
  - Ankle fracture [None]
  - Fall [None]
  - Muscle spasms [None]
  - Pain [None]
  - Back pain [None]
  - Insomnia [None]
